FAERS Safety Report 5393399-3 (Version None)
Quarter: 2007Q3

REPORT INFORMATION
  Report Type: 
  Country: None (occurrence: None)
  Receive Date: 20070717
  Receipt Date: 20070717
  Transmission Date: 20080115
  Serious: Yes (Hospitalization)
  Sender: FDA-Public Use
  Company Number: None

PATIENT
  Sex: Female
  Weight: 101.6 kg

DRUGS (3)
  1. CISPLATIN [Suspect]
     Dosage: 100 MG
  2. TAXOL [Suspect]
     Dosage: 270 MG
  3. VICODIN [Concomitant]

REACTIONS (2)
  - GASTROINTESTINAL HYPOMOTILITY [None]
  - METASTATIC NEOPLASM [None]
